FAERS Safety Report 9537704 (Version 2)
Quarter: 2013Q4

REPORT INFORMATION
  Report Type: Spontaneous
  Country: AT (occurrence: AT)
  Receive Date: 20130919
  Receipt Date: 20131015
  Transmission Date: 20140711
  Serious: No
  Sender: FDA-Public Use
  Company Number: AT-B.I. PHARMACEUTICALS,INC./RIDGEFIELD-2013-BI-29044AP

PATIENT
  Age: 62 Year
  Sex: Male
  Weight: 77 kg

DRUGS (9)
  1. TRAJENTA [Suspect]
     Indication: TYPE 2 DIABETES MELLITUS
     Dosage: 5 MG
     Route: 048
     Dates: start: 20130814, end: 201309
  2. ADVAGRAF [Concomitant]
     Indication: POST PROCEDURAL COMPLICATION
     Route: 048
     Dates: start: 201003
  3. CELLCEPT [Concomitant]
     Indication: POST PROCEDURAL COMPLICATION
     Route: 048
     Dates: start: 201003
  4. PANTOLOC [Concomitant]
     Route: 048
     Dates: start: 2010
  5. SELOKEN RETARD [Concomitant]
     Route: 048
     Dates: start: 2011
  6. SORTIS [Concomitant]
     Dosage: 20 MG
  7. NOVONORM [Concomitant]
  8. RAMIPRIL / HCT [Concomitant]
     Dosage: 5/12.5
  9. PLAVIX [Concomitant]

REACTIONS (3)
  - Swollen tongue [Recovered/Resolved]
  - Oropharyngeal pain [Recovered/Resolved]
  - Rash [Recovered/Resolved]
